FAERS Safety Report 8830898 (Version 2)
Quarter: 2012Q4

REPORT INFORMATION
  Report Type: 
  Country: NL (occurrence: NL)
  Receive Date: 20121008
  Receipt Date: 20121018
  Transmission Date: 20130627
  Serious: Yes (Hospitalization, Other)
  Sender: FDA-Public Use
  Company Number: NL-ACTELION-A-CH2012-72406

PATIENT
  Age: 42 Year
  Sex: Male

DRUGS (7)
  1. BOSENTAN [Suspect]
     Indication: DIGITAL ULCER
     Dosage: 125 mg, bid
     Route: 048
     Dates: start: 20110822, end: 20120810
  2. BOSENTAN [Suspect]
     Dosage: 62.5 mg, bid
     Route: 048
     Dates: start: 20110725, end: 20110821
  3. OMEPRAZOLE [Concomitant]
  4. SILDENAFIL [Concomitant]
  5. ENALAPRIL [Concomitant]
  6. NIFEDIPINE [Concomitant]
  7. TRIAMTEREN HCT [Concomitant]

REACTIONS (5)
  - Bone marrow failure [Not Recovered/Not Resolved]
  - Haemoglobin decreased [Not Recovered/Not Resolved]
  - Haematocrit decreased [Not Recovered/Not Resolved]
  - Platelet count decreased [Not Recovered/Not Resolved]
  - Red blood cell sedimentation rate increased [Not Recovered/Not Resolved]
